FAERS Safety Report 13266772 (Version 1)
Quarter: 2017Q1

REPORT INFORMATION
  Report Type: Report from Study
  Country: None (occurrence: US)
  Receive Date: 20170224
  Receipt Date: 20170224
  Transmission Date: 20170428
  Serious: Yes (Other)
  Sender: FDA-Public Use
  Company Number: US-ABBVIE-17K-163-1880416-00

PATIENT
  Age: 61 Year
  Sex: Female

DRUGS (1)
  1. HUMIRA [Suspect]
     Active Substance: ADALIMUMAB
     Indication: RHEUMATOID ARTHRITIS
     Route: 058
     Dates: start: 20160815, end: 201702

REACTIONS (4)
  - Peripheral swelling [Unknown]
  - Limb discomfort [Unknown]
  - Poor peripheral circulation [Unknown]
  - Nausea [Unknown]

NARRATIVE: CASE EVENT DATE: 20170215
